FAERS Safety Report 23241580 (Version 7)
Quarter: 2025Q2

REPORT INFORMATION
  Report Type: Report from Study
  Country: FR (occurrence: FR)
  Receive Date: 20231129
  Receipt Date: 20250513
  Transmission Date: 20250717
  Serious: Yes (Life-Threatening, Hospitalization)
  Sender: MYLAN
  Company Number: FR-ROCHE-3446269

PATIENT
  Age: 33 Year
  Sex: Female
  Weight: 90 kg

DRUGS (84)
  1. MYCOPHENOLATE MOFETIL [Suspect]
     Active Substance: MYCOPHENOLATE MOFETIL
     Indication: Systemic lupus erythematosus
     Dosage: 2500 MILLIGRAM, QD (1000 MG IN THE MORNING, 500 MG AT NOON AND 1000 MG IN THE EVENING)
     Route: 048
     Dates: start: 20210408, end: 20231011
  2. MYCOPHENOLATE MOFETIL [Suspect]
     Active Substance: MYCOPHENOLATE MOFETIL
     Dosage: 2500 MILLIGRAM, QD (1000 MG IN THE MORNING, 500 MG AT NOON AND 1000 MG IN THE EVENING)
     Dates: start: 20210408, end: 20231011
  3. MYCOPHENOLATE MOFETIL [Suspect]
     Active Substance: MYCOPHENOLATE MOFETIL
     Dosage: 2500 MILLIGRAM, QD (1000 MG IN THE MORNING, 500 MG AT NOON AND 1000 MG IN THE EVENING)
     Dates: start: 20210408, end: 20231011
  4. MYCOPHENOLATE MOFETIL [Suspect]
     Active Substance: MYCOPHENOLATE MOFETIL
     Dosage: 2500 MILLIGRAM, QD (1000 MG IN THE MORNING, 500 MG AT NOON AND 1000 MG IN THE EVENING)
     Route: 048
     Dates: start: 20210408, end: 20231011
  5. MYCOPHENOLATE MOFETIL [Suspect]
     Active Substance: MYCOPHENOLATE MOFETIL
     Dosage: 2500 MILLIGRAM, QD (1G-500MG-1G)
     Route: 048
     Dates: start: 202103, end: 20231011
  6. MYCOPHENOLATE MOFETIL [Suspect]
     Active Substance: MYCOPHENOLATE MOFETIL
     Dosage: 2500 MILLIGRAM, QD (1G-500MG-1G)
     Dates: start: 202103, end: 20231011
  7. MYCOPHENOLATE MOFETIL [Suspect]
     Active Substance: MYCOPHENOLATE MOFETIL
     Dosage: 2500 MILLIGRAM, QD (1G-500MG-1G)
     Dates: start: 202103, end: 20231011
  8. MYCOPHENOLATE MOFETIL [Suspect]
     Active Substance: MYCOPHENOLATE MOFETIL
     Dosage: 2500 MILLIGRAM, QD (1G-500MG-1G)
     Route: 048
     Dates: start: 202103, end: 20231011
  9. METHYLPREDNISOLONE [Suspect]
     Active Substance: METHYLPREDNISOLONE
     Indication: Product used for unknown indication
     Route: 042
     Dates: start: 20230426, end: 20230426
  10. METHYLPREDNISOLONE [Suspect]
     Active Substance: METHYLPREDNISOLONE
     Dates: start: 20230426, end: 20230426
  11. METHYLPREDNISOLONE [Suspect]
     Active Substance: METHYLPREDNISOLONE
     Dates: start: 20230426, end: 20230426
  12. METHYLPREDNISOLONE [Suspect]
     Active Substance: METHYLPREDNISOLONE
     Route: 042
     Dates: start: 20230426, end: 20230426
  13. METHYLPREDNISOLONE [Suspect]
     Active Substance: METHYLPREDNISOLONE
     Route: 042
     Dates: start: 20230427, end: 20230427
  14. METHYLPREDNISOLONE [Suspect]
     Active Substance: METHYLPREDNISOLONE
     Dates: start: 20230427, end: 20230427
  15. METHYLPREDNISOLONE [Suspect]
     Active Substance: METHYLPREDNISOLONE
     Dates: start: 20230427, end: 20230427
  16. METHYLPREDNISOLONE [Suspect]
     Active Substance: METHYLPREDNISOLONE
     Route: 042
     Dates: start: 20230427, end: 20230427
  17. IBUPROFEN [Suspect]
     Active Substance: IBUPROFEN
     Indication: Headache
     Dosage: 1200 MILLIGRAM, QD (400 MG X3/D)
     Route: 048
     Dates: start: 20230930, end: 20231005
  18. IBUPROFEN [Suspect]
     Active Substance: IBUPROFEN
     Indication: Sinus pain
     Dosage: 1200 MILLIGRAM, QD (400 MG X3/D)
     Dates: start: 20230930, end: 20231005
  19. IBUPROFEN [Suspect]
     Active Substance: IBUPROFEN
     Dosage: 1200 MILLIGRAM, QD (400 MG X3/D)
     Dates: start: 20230930, end: 20231005
  20. IBUPROFEN [Suspect]
     Active Substance: IBUPROFEN
     Dosage: 1200 MILLIGRAM, QD (400 MG X3/D)
     Route: 048
     Dates: start: 20230930, end: 20231005
  21. IBUPROFEN [Suspect]
     Active Substance: IBUPROFEN
     Route: 048
     Dates: start: 20230930, end: 20231005
  22. IBUPROFEN [Suspect]
     Active Substance: IBUPROFEN
     Dates: start: 20230930, end: 20231005
  23. IBUPROFEN [Suspect]
     Active Substance: IBUPROFEN
     Dates: start: 20230930, end: 20231005
  24. IBUPROFEN [Suspect]
     Active Substance: IBUPROFEN
     Route: 048
     Dates: start: 20230930, end: 20231005
  25. BACTRIM [Suspect]
     Active Substance: SULFAMETHOXAZOLE\TRIMETHOPRIM
     Indication: Systemic lupus erythematosus
     Dosage: 1 DOSAGE FORM, QD (1 INTERNATIONAL UNIT, 1X/DAY)
     Dates: start: 20230426, end: 20231011
  26. BACTRIM [Suspect]
     Active Substance: SULFAMETHOXAZOLE\TRIMETHOPRIM
     Indication: Neutropenia
     Dosage: 1 DOSAGE FORM, QD (1 INTERNATIONAL UNIT, 1X/DAY)
     Route: 048
     Dates: start: 20230426, end: 20231011
  27. BACTRIM [Suspect]
     Active Substance: SULFAMETHOXAZOLE\TRIMETHOPRIM
     Dosage: 1 DOSAGE FORM, QD (1 INTERNATIONAL UNIT, 1X/DAY)
     Route: 048
     Dates: start: 20230426, end: 20231011
  28. BACTRIM [Suspect]
     Active Substance: SULFAMETHOXAZOLE\TRIMETHOPRIM
     Dosage: 1 DOSAGE FORM, QD (1 INTERNATIONAL UNIT, 1X/DAY)
     Dates: start: 20230426, end: 20231011
  29. OBINUTUZUMAB [Suspect]
     Active Substance: OBINUTUZUMAB
     Indication: Lupus nephritis
     Dates: start: 20230426, end: 20230516
  30. OBINUTUZUMAB [Suspect]
     Active Substance: OBINUTUZUMAB
     Indication: Systemic lupus erythematosus
     Route: 042
     Dates: start: 20230426, end: 20230516
  31. OBINUTUZUMAB [Suspect]
     Active Substance: OBINUTUZUMAB
     Route: 042
     Dates: start: 20230426, end: 20230516
  32. OBINUTUZUMAB [Suspect]
     Active Substance: OBINUTUZUMAB
     Dates: start: 20230426, end: 20230516
  33. SOLU-MEDROL [Suspect]
     Active Substance: METHYLPREDNISOLONE SODIUM SUCCINATE
     Indication: Product used for unknown indication
     Dates: start: 20230516, end: 20230516
  34. SOLU-MEDROL [Suspect]
     Active Substance: METHYLPREDNISOLONE SODIUM SUCCINATE
     Route: 042
     Dates: start: 20230516, end: 20230516
  35. SOLU-MEDROL [Suspect]
     Active Substance: METHYLPREDNISOLONE SODIUM SUCCINATE
     Route: 042
     Dates: start: 20230516, end: 20230516
  36. SOLU-MEDROL [Suspect]
     Active Substance: METHYLPREDNISOLONE SODIUM SUCCINATE
     Dates: start: 20230516, end: 20230516
  37. OBINUTUZUMAB [Suspect]
     Active Substance: OBINUTUZUMAB
     Indication: Systemic lupus erythematosus
     Route: 042
     Dates: start: 20230426, end: 20230426
  38. OBINUTUZUMAB [Suspect]
     Active Substance: OBINUTUZUMAB
     Dates: start: 20230426, end: 20230426
  39. OBINUTUZUMAB [Suspect]
     Active Substance: OBINUTUZUMAB
     Dates: start: 20230426, end: 20230426
  40. OBINUTUZUMAB [Suspect]
     Active Substance: OBINUTUZUMAB
     Route: 042
     Dates: start: 20230426, end: 20230426
  41. OBINUTUZUMAB [Suspect]
     Active Substance: OBINUTUZUMAB
     Route: 042
     Dates: start: 20230516, end: 20230516
  42. OBINUTUZUMAB [Suspect]
     Active Substance: OBINUTUZUMAB
     Dates: start: 20230516, end: 20230516
  43. OBINUTUZUMAB [Suspect]
     Active Substance: OBINUTUZUMAB
     Dates: start: 20230516, end: 20230516
  44. OBINUTUZUMAB [Suspect]
     Active Substance: OBINUTUZUMAB
     Route: 042
     Dates: start: 20230516, end: 20230516
  45. LOVENOX [Concomitant]
     Active Substance: ENOXAPARIN SODIUM
     Dates: start: 20231013, end: 20231017
  46. LOVENOX [Concomitant]
     Active Substance: ENOXAPARIN SODIUM
     Route: 065
     Dates: start: 20231013, end: 20231017
  47. LOVENOX [Concomitant]
     Active Substance: ENOXAPARIN SODIUM
     Route: 065
     Dates: start: 20231013, end: 20231017
  48. LOVENOX [Concomitant]
     Active Substance: ENOXAPARIN SODIUM
     Dates: start: 20231013, end: 20231017
  49. Renitec [Concomitant]
     Dosage: 20 MILLIGRAM, QD (1 TABLET PER DAY IN THE MORNING)
     Dates: start: 20210408
  50. Renitec [Concomitant]
     Dosage: 20 MILLIGRAM, QD (1 TABLET PER DAY IN THE MORNING)
     Route: 065
     Dates: start: 20210408
  51. Renitec [Concomitant]
     Dosage: 20 MILLIGRAM, QD (1 TABLET PER DAY IN THE MORNING)
     Route: 065
     Dates: start: 20210408
  52. Renitec [Concomitant]
     Dosage: 20 MILLIGRAM, QD (1 TABLET PER DAY IN THE MORNING)
     Dates: start: 20210408
  53. PLAQUENIL [Concomitant]
     Active Substance: HYDROXYCHLOROQUINE SULFATE
     Dosage: 400 MILLIGRAM, QD (2 TABLETS IN THE EVENING)
     Dates: start: 20200128
  54. PLAQUENIL [Concomitant]
     Active Substance: HYDROXYCHLOROQUINE SULFATE
     Dosage: 400 MILLIGRAM, QD (2 TABLETS IN THE EVENING)
     Route: 065
     Dates: start: 20200128
  55. PLAQUENIL [Concomitant]
     Active Substance: HYDROXYCHLOROQUINE SULFATE
     Dosage: 400 MILLIGRAM, QD (2 TABLETS IN THE EVENING)
     Route: 065
     Dates: start: 20200128
  56. PLAQUENIL [Concomitant]
     Active Substance: HYDROXYCHLOROQUINE SULFATE
     Dosage: 400 MILLIGRAM, QD (2 TABLETS IN THE EVENING)
     Dates: start: 20200128
  57. LEVOFLOXACIN [Concomitant]
     Active Substance: LEVOFLOXACIN
     Indication: Sinusitis
     Dates: start: 20231006, end: 20231011
  58. LEVOFLOXACIN [Concomitant]
     Active Substance: LEVOFLOXACIN
     Route: 065
     Dates: start: 20231006, end: 20231011
  59. LEVOFLOXACIN [Concomitant]
     Active Substance: LEVOFLOXACIN
     Route: 065
     Dates: start: 20231006, end: 20231011
  60. LEVOFLOXACIN [Concomitant]
     Active Substance: LEVOFLOXACIN
     Dates: start: 20231006, end: 20231011
  61. Spasfon [Concomitant]
     Indication: Abdominal pain
  62. Spasfon [Concomitant]
     Route: 065
  63. Spasfon [Concomitant]
     Route: 065
  64. Spasfon [Concomitant]
  65. PREDNISONE [Concomitant]
     Active Substance: PREDNISONE
     Dosage: 5 MILLIGRAM, QD (IN THE MORNING)
     Dates: start: 20210719
  66. PREDNISONE [Concomitant]
     Active Substance: PREDNISONE
     Dosage: 5 MILLIGRAM, QD (IN THE MORNING)
     Route: 065
     Dates: start: 20210719
  67. PREDNISONE [Concomitant]
     Active Substance: PREDNISONE
     Dosage: 5 MILLIGRAM, QD (IN THE MORNING)
     Route: 065
     Dates: start: 20210719
  68. PREDNISONE [Concomitant]
     Active Substance: PREDNISONE
     Dosage: 5 MILLIGRAM, QD (IN THE MORNING)
     Dates: start: 20210719
  69. SYMBICORT [Concomitant]
     Active Substance: BUDESONIDE\FORMOTEROL FUMARATE DIHYDRATE
     Dosage: 200 INTERNATIONAL UNIT, QD (1 PUFF PER DAY)
     Dates: start: 20131119
  70. SYMBICORT [Concomitant]
     Active Substance: BUDESONIDE\FORMOTEROL FUMARATE DIHYDRATE
     Dosage: 200 INTERNATIONAL UNIT, QD (1 PUFF PER DAY)
     Route: 065
     Dates: start: 20131119
  71. SYMBICORT [Concomitant]
     Active Substance: BUDESONIDE\FORMOTEROL FUMARATE DIHYDRATE
     Dosage: 200 INTERNATIONAL UNIT, QD (1 PUFF PER DAY)
     Route: 065
     Dates: start: 20131119
  72. SYMBICORT [Concomitant]
     Active Substance: BUDESONIDE\FORMOTEROL FUMARATE DIHYDRATE
     Dosage: 200 INTERNATIONAL UNIT, QD (1 PUFF PER DAY)
     Dates: start: 20131119
  73. EUPANTOL [Concomitant]
     Active Substance: PANTOPRAZOLE SODIUM
     Dates: start: 20160125, end: 20231011
  74. EUPANTOL [Concomitant]
     Active Substance: PANTOPRAZOLE SODIUM
     Route: 065
     Dates: start: 20160125, end: 20231011
  75. EUPANTOL [Concomitant]
     Active Substance: PANTOPRAZOLE SODIUM
     Route: 065
     Dates: start: 20160125, end: 20231011
  76. EUPANTOL [Concomitant]
     Active Substance: PANTOPRAZOLE SODIUM
     Dates: start: 20160125, end: 20231011
  77. DOLIPRANE [Concomitant]
     Active Substance: ACETAMINOPHEN
  78. DOLIPRANE [Concomitant]
     Active Substance: ACETAMINOPHEN
     Route: 065
  79. DOLIPRANE [Concomitant]
     Active Substance: ACETAMINOPHEN
     Route: 065
  80. DOLIPRANE [Concomitant]
     Active Substance: ACETAMINOPHEN
  81. CALTRATE [Concomitant]
     Active Substance: CALCIUM CARBONATE
     Indication: Osteoporosis
  82. CALTRATE [Concomitant]
     Active Substance: CALCIUM CARBONATE
     Route: 065
  83. CALTRATE [Concomitant]
     Active Substance: CALCIUM CARBONATE
     Route: 065
  84. CALTRATE [Concomitant]
     Active Substance: CALCIUM CARBONATE

REACTIONS (3)
  - Agranulocytosis [Recovered/Resolved]
  - Pyrexia [Recovered/Resolved]
  - Off label use [Unknown]

NARRATIVE: CASE EVENT DATE: 20230426
